FAERS Safety Report 14685375 (Version 2)
Quarter: 2018Q2

REPORT INFORMATION
  Report Type: Spontaneous
  Country: JP (occurrence: JP)
  Receive Date: 20180327
  Receipt Date: 20180612
  Transmission Date: 20180711
  Serious: Yes (Hospitalization, Other)
  Sender: FDA-Public Use
  Company Number: JP-GILEAD-2018-0318570

PATIENT
  Sex: Male

DRUGS (5)
  1. VEMLIDY [Suspect]
     Active Substance: TENOFOVIR ALAFENAMIDE FUMARATE
     Indication: VIRAL HEPATITIS CARRIER
     Dosage: 25 MG, UNK
     Route: 048
     Dates: start: 20180123
  2. JANUVIA [Concomitant]
     Active Substance: SITAGLIPTIN PHOSPHATE
     Indication: DIABETES MELLITUS
     Dosage: 50 MG, UNK
  3. GASTROM [Concomitant]
     Active Substance: ECABET SODIUM
  4. AMLODIPINE [Concomitant]
     Active Substance: AMLODIPINE BESYLATE
     Indication: HYPERTENSION
     Dosage: 25 MG, UNK
  5. GASTER [Concomitant]
     Active Substance: FAMOTIDINE
     Dosage: 20 MG, BID

REACTIONS (3)
  - Abdominal discomfort [Not Recovered/Not Resolved]
  - Liver transplant [Unknown]
  - Jaundice [Unknown]

NARRATIVE: CASE EVENT DATE: 2018
